FAERS Safety Report 10468891 (Version 5)
Quarter: 2014Q4

REPORT INFORMATION
  Report Type: Spontaneous
  Country: JP (occurrence: JP)
  Receive Date: 20140923
  Receipt Date: 20141229
  Transmission Date: 20150528
  Serious: Yes (Life-Threatening)
  Sender: FDA-Public Use
  Company Number: JP-ROCHE-1464326

PATIENT
  Age: 45 Year
  Sex: Female
  Weight: 39 kg

DRUGS (19)
  1. DORMICUM (INJ) [Suspect]
     Active Substance: MIDAZOLAM HYDROCHLORIDE
     Indication: STATUS EPILEPTICUS
     Route: 042
     Dates: start: 20120510, end: 20120518
  2. ZOVIRAX [Suspect]
     Active Substance: ACYCLOVIR
     Indication: PYREXIA
     Dosage: DOSAGE IS UNCERTAIN.
     Route: 042
     Dates: start: 20120508, end: 20120511
  3. VANCOMYCIN [Suspect]
     Active Substance: VANCOMYCIN
     Indication: PYREXIA
     Route: 042
     Dates: start: 20120508, end: 20120510
  4. VANCOMYCIN [Suspect]
     Active Substance: VANCOMYCIN
     Indication: INFECTION
     Route: 065
  5. ROCEPHIN [Suspect]
     Active Substance: CEFTRIAXONE SODIUM
     Indication: PYREXIA
     Route: 042
     Dates: start: 20120508, end: 20120510
  6. KEPPRA [Suspect]
     Active Substance: LEVETIRACETAM
     Route: 065
  7. MINOMYCIN [Suspect]
     Active Substance: MINOCYCLINE HYDROCHLORIDE
     Indication: PYREXIA
     Route: 042
  8. PREDNISOLONE SODIUM SUCCINATE [Concomitant]
     Active Substance: PREDNISOLONE SODIUM SUCCINATE
     Dosage: DOSAGE IS UNCERTAIN.
     Route: 065
  9. CEFEPIME [Suspect]
     Active Substance: CEFEPIME\CEFEPIME HYDROCHLORIDE
     Indication: PRODUCT USED FOR UNKNOWN INDICATION
     Dosage: DOSAGE IS UNCERTAIN.
     Route: 065
  10. DEPAKENE [Suspect]
     Active Substance: VALPROIC ACID
     Indication: SEIZURE
     Dosage: 200-600MG, THRICE DAILY
     Route: 048
     Dates: start: 20120516, end: 20120528
  11. NOBELBAR [Suspect]
     Active Substance: PHENOBARBITAL SODIUM
     Indication: EPILEPSY
     Dosage: 325-900MG, ONCE DAILY
     Route: 065
     Dates: start: 20120511, end: 20120516
  12. RAVONAL [Suspect]
     Active Substance: THIOPENTAL
     Indication: ANAESTHESIA PROCEDURE
     Dosage: 150-250MG/HOUR; CONTINUOUS
     Route: 042
     Dates: start: 20120518, end: 20120602
  13. KEPPRA [Suspect]
     Active Substance: LEVETIRACETAM
     Indication: SEIZURE
     Dosage: 250-500MG
     Route: 048
     Dates: start: 20120515, end: 20120530
  14. DORMICUM (INJ) [Suspect]
     Active Substance: MIDAZOLAM HYDROCHLORIDE
     Route: 042
  15. MINOMYCIN [Suspect]
     Active Substance: MINOCYCLINE HYDROCHLORIDE
     Indication: INFECTION
  16. PHENYTOIN. [Suspect]
     Active Substance: PHENYTOIN
     Indication: SEIZURE
     Dosage: 337.5-900MG, ONCE DAILY
     Route: 042
     Dates: start: 20120511, end: 20120528
  17. METHYLPREDNISOLONE. [Concomitant]
     Active Substance: METHYLPREDNISOLONE
     Dosage: DOSAGE IS UNCERTAIN.
     Route: 065
  18. ZOVIRAX [Suspect]
     Active Substance: ACYCLOVIR
     Indication: INFECTION
  19. DIPRIVAN [Suspect]
     Active Substance: PROPOFOL
     Indication: ANAESTHESIA PROCEDURE
     Dosage: ABOUT 40-120 1/4 G/HOUR; CONTINUOUS
     Route: 042
     Dates: start: 20120510, end: 20120518

REACTIONS (11)
  - Histiocytosis haematophagic [Recovered/Resolved]
  - Hypertriglyceridaemia [None]
  - Encephalitis [None]
  - Drug hypersensitivity [None]
  - No therapeutic response [None]
  - Drug eruption [Unknown]
  - Interleukin-2 receptor increased [None]
  - Meningitis [None]
  - Hyperferritinaemia [None]
  - Multi-organ failure [Recovering/Resolving]
  - Haemodialysis [None]

NARRATIVE: CASE EVENT DATE: 20120523
